FAERS Safety Report 4633603-X (Version None)
Quarter: 2005Q2

REPORT INFORMATION
  Report Type: 
  Country: None (occurrence: None)
  Receive Date: 20050412
  Receipt Date: 20050412
  Transmission Date: 20051028
  Serious: Yes (Hospitalization)
  Sender: FDA-Public Use
  Company Number: None

PATIENT
  Age: 54 Year
  Sex: Male
  Weight: 87.5 kg

DRUGS (1)
  1. INSULIN 70/30 NPH/REG [Suspect]

REACTIONS (1)
  - HYPOGLYCAEMIA [None]
